FAERS Safety Report 12640000 (Version 1)
Quarter: 2016Q3

REPORT INFORMATION
  Report Type: Spontaneous
  Country: US (occurrence: US)
  Receive Date: 20160810
  Receipt Date: 20160810
  Transmission Date: 20161109
  Serious: Yes (Hospitalization)
  Sender: FDA-Public Use
  Company Number: US-SUN PHARMACEUTICAL INDUSTRIES LTD-2016US-121338

PATIENT
  Age: 61 Year
  Sex: Male

DRUGS (1)
  1. GLIPIZIDE. [Suspect]
     Active Substance: GLIPIZIDE
     Indication: PRODUCT USED FOR UNKNOWN INDICATION
     Dosage: APPROXIMATELY 20 TABLETS OF VARIOUS HOME MEDS, INCLUDING GLIPIZIDE
     Route: 048

REACTIONS (2)
  - Intentional overdose [Recovering/Resolving]
  - Hypoglycaemia [Recovering/Resolving]
